FAERS Safety Report 13704851 (Version 3)
Quarter: 2017Q3

REPORT INFORMATION
  Report Type: Report from Study
  Country: BR (occurrence: BR)
  Receive Date: 20170630
  Receipt Date: 20170810
  Transmission Date: 20171127
  Serious: Yes (Hospitalization)
  Sender: FDA-Public Use
  Company Number: PHHY2017BR095769

PATIENT
  Sex: Male
  Weight: 88 kg

DRUGS (2)
  1. COSENTYX [Suspect]
     Active Substance: SECUKINUMAB
     Indication: PSORIASIS
     Dosage: 150 MG, QW
     Route: 065
     Dates: end: 20170620
  2. COSENTYX [Suspect]
     Active Substance: SECUKINUMAB
     Dosage: 150 MG, QMO
     Route: 065
     Dates: start: 20170720

REACTIONS (5)
  - Drug effect incomplete [Unknown]
  - Cardiomegaly [Unknown]
  - Weight decreased [Unknown]
  - Tachycardia [Unknown]
  - Hernia [Unknown]
